FAERS Safety Report 10648805 (Version 1)
Quarter: 2014Q4

REPORT INFORMATION
  Report Type: Spontaneous
  Country: GB (occurrence: None)
  Receive Date: 20141210
  Receipt Date: 20141210
  Transmission Date: 20150529
  Serious: Yes (Other)
  Sender: FDA-Public Use
  Company Number: GB2014GSK032714

PATIENT
  Sex: Male

DRUGS (1)
  1. KIVEXA [Suspect]
     Active Substance: ABACAVIR SULFATE\LAMIVUDINE
     Indication: HIV INFECTION
     Route: 048
     Dates: start: 2004

REACTIONS (2)
  - Chest pain [None]
  - Cerebrovascular accident [None]

NARRATIVE: CASE EVENT DATE: 2011
